FAERS Safety Report 18204499 (Version 2)
Quarter: 2025Q1

REPORT INFORMATION
  Report Type: Spontaneous
  Country: ES (occurrence: ES)
  Receive Date: 20200828
  Receipt Date: 20250222
  Transmission Date: 20250409
  Serious: Yes (Life-Threatening)
  Sender: AUROBINDO
  Company Number: ES-AEMPS-669291

PATIENT
  Age: 23 Year
  Sex: Female

DRUGS (2)
  1. ACETAMINOPHEN [Suspect]
     Active Substance: ACETAMINOPHEN
     Indication: Product used for unknown indication
     Route: 048
     Dates: start: 20200811, end: 20200811
  2. ESOMEPRAZOLE [Suspect]
     Active Substance: ESOMEPRAZOLE
     Indication: Product used for unknown indication
     Route: 048
     Dates: start: 20200811, end: 20200811

REACTIONS (2)
  - Asthenia [Recovered/Resolved]
  - Intentional overdose [Recovered/Resolved]

NARRATIVE: CASE EVENT DATE: 20200811
